FAERS Safety Report 12930418 (Version 2)
Quarter: 2017Q1

REPORT INFORMATION
  Report Type: Report from Study
  Country: None (occurrence: BR)
  Receive Date: 20161110
  Receipt Date: 20170120
  Transmission Date: 20170428
  Serious: Yes (Other)
  Sender: FDA-Public Use
  Company Number: BR-ABBVIE-16P-020-1777575-00

PATIENT
  Sex: Female

DRUGS (8)
  1. NICORD [Concomitant]
     Indication: BLOOD PRESSURE MANAGEMENT
     Dosage: 5MG (2.5 MG IN THE MORNING AND 2.5 MG AT NIGHT)
  2. COLCHIS [Concomitant]
     Indication: GOUT
  3. SYNTHROID [Suspect]
     Active Substance: LEVOTHYROXINE SODIUM
     Indication: HYPOTHYROIDISM
     Dosage: DAILY DOSE: 50 MICROGRAM (1 TABLET); IN FASTING
     Route: 048
  4. PANTOPRAZOLE [Concomitant]
     Active Substance: PANTOPRAZOLE SODIUM
     Indication: GASTRIC DISORDER
     Dosage: 20 MG (1 TABLET) IN FASTING
  5. COLCHIS [Concomitant]
     Indication: RHEUMATOID ARTHRITIS
     Dosage: 0.5 MG (1 TABLET) AT NIGHT
  6. ZYLORIC [Concomitant]
     Active Substance: ALLOPURINOL
     Indication: BLOOD URIC ACID
     Dosage: 300 MG (WHEN IT IS HIGH - 1 TABLET A DAY)
  7. PANTOPRAZOLE [Concomitant]
     Active Substance: PANTOPRAZOLE SODIUM
     Indication: PROPHYLAXIS
  8. GLIFAGE [Concomitant]
     Active Substance: METFORMIN HYDROCHLORIDE
     Indication: DIABETES MELLITUS

REACTIONS (1)
  - Diabetes mellitus [Not Recovered/Not Resolved]
